FAERS Safety Report 23591810 (Version 2)
Quarter: 2024Q2

REPORT INFORMATION
  Report Type: Spontaneous
  Country: US (occurrence: US)
  Receive Date: 20240304
  Receipt Date: 20240430
  Transmission Date: 20240715
  Serious: Yes (Other)
  Sender: FDA-Public Use
  Company Number: US-002147023-NVSC2024US043397

PATIENT

DRUGS (1)
  1. KESIMPTA [Suspect]
     Active Substance: OFATUMUMAB
     Indication: Relapsing-remitting multiple sclerosis
     Dosage: UNK (FOR 5 MONTHS)
     Route: 065

REACTIONS (8)
  - Multiple sclerosis relapse [Unknown]
  - Hemiparesis [Recovering/Resolving]
  - Cognitive disorder [Unknown]
  - Brain fog [Recovering/Resolving]
  - Multiple sclerosis pseudo relapse [Unknown]
  - Vertigo [Unknown]
  - Sensory overload [Unknown]
  - Brain fog [Unknown]
